FAERS Safety Report 4690283-5 (Version None)
Quarter: 2005Q2

REPORT INFORMATION
  Report Type: 
  Country: None (occurrence: None)
  Receive Date: 20050615
  Receipt Date: 20041203
  Transmission Date: 20051028
  Serious: Yes (Other)
  Sender: FDA-Public Use
  Company Number: GB-GLAXOSMITHKLINE-B0359676A

PATIENT
  Sex: Female

DRUGS (2)
  1. SEROXAT [Suspect]
     Route: 065
  2. FLUOXETINE HCL [Concomitant]
     Route: 065

REACTIONS (6)
  - ANGER [None]
  - COMPLETED SUICIDE [None]
  - EMOTIONAL DISTRESS [None]
  - ILL-DEFINED DISORDER [None]
  - SUICIDAL IDEATION [None]
  - THERAPY NON-RESPONDER [None]
